FAERS Safety Report 9892342 (Version 2)
Quarter: 2014Q1

REPORT INFORMATION
  Report Type: Report from Study
  Country: FR (occurrence: FR)
  Receive Date: 20140212
  Receipt Date: 20140212
  Transmission Date: 20141002
  Serious: Yes (Other)
  Sender: FDA-Public Use
  Company Number: FR-CELGENEUS-056-21880-14011797

PATIENT
  Age: 67 Year
  Sex: Female
  Weight: 62 kg

DRUGS (2)
  1. BLINDED REVLIMID [Suspect]
     Indication: B-CELL LYMPHOMA
     Dosage: 11.25 MILLIGRAM
     Route: 048
     Dates: start: 20130815
  2. BLINDED REVLIMID [Suspect]
     Dosage: 15 MILLIGRAM
     Route: 048
     Dates: start: 20131010

REACTIONS (1)
  - Drug administration error [Recovered/Resolved]
